FAERS Safety Report 8186540-0 (Version None)
Quarter: 2012Q1

REPORT INFORMATION
  Report Type: 
  Country: None (occurrence: None)
  Receive Date: 20120302
  Receipt Date: 20120302
  Transmission Date: 20120608
  Serious: Yes (Other)
  Sender: FDA-Public Use
  Company Number: None

PATIENT
  Sex: Male

DRUGS (1)
  1. CIMZIA [Suspect]
     Indication: HEADACHE
     Dosage: INJECT 2 SYRINGES (400MG) EVERY 4 WEEKS SUBUTANEOUS
     Route: 058
     Dates: start: 20120229

REACTIONS (1)
  - INFLUENZA LIKE ILLNESS [None]
